FAERS Safety Report 4693729-1 (Version None)
Quarter: 2005Q2

REPORT INFORMATION
  Report Type: 
  Country: None (occurrence: None)
  Receive Date: 20050615
  Receipt Date: 20050614
  Transmission Date: 20051028
  Serious: Yes (Other)
  Sender: FDA-Public Use
  Company Number: HQ2864418JUN2002

PATIENT
  Age: 75 Year
  Sex: Female

DRUGS (5)
  1. FOLVITE [Suspect]
     Indication: PROPHYLAXIS
     Dosage: 1 MG 1X PER 1 DAY, ORAL
     Route: 048
     Dates: start: 20020522, end: 20020529
  2. PLAVIX [Suspect]
     Indication: CORONARY ARTERY DISEASE
     Dosage: 75 MG 1X PER 1 DAY, ORAL
     Route: 048
     Dates: start: 20020522, end: 20020529
  3. ASPIRIN [Concomitant]
  4. ATORVASTATIN CALCIUM [Concomitant]
  5. LOGIMAX  (GELODIPINE/METOPROLOL SUCCINATE) [Concomitant]

REACTIONS (2)
  - RASH ERYTHEMATOUS [None]
  - URTICARIA [None]
